FAERS Safety Report 9182188 (Version 1)
Quarter: 2013Q1

REPORT INFORMATION
  Report Type: Spontaneous
  Country: US (occurrence: None)
  Receive Date: 20120622
  Receipt Date: 20120622
  Transmission Date: 20140127
  Serious: Yes (Hospitalization)
  Sender: FDA-Public Use
  Company Number: QSC-2012-0069

PATIENT
  Age: 60 Year
  Sex: Female
  Weight: 82.5 kg

DRUGS (5)
  1. H.P. ACTHAR GEL [Suspect]
     Indication: MULTIPLE SCLEROSIS
     Route: 058
     Dates: start: 20120410, end: 20120414
  2. CLONAZEPAM (CLONAZEPAM) (CLONAZEPAM) [Concomitant]
  3. LEXAPRO (ESCITALOPRAM HORMONE) [Concomitant]
  4. VITAMIN D (ERGOCALCIFEROL) [Concomitant]
  5. LEVOTHYROXINE (LEVOTHYROXINE) [Concomitant]

REACTIONS (1)
  - Blood potassium decreased [None]
